FAERS Safety Report 5563541-X (Version None)
Quarter: 2007Q4

REPORT INFORMATION
  Report Type: 
  Country: None (occurrence: None)
  Receive Date: 20071217
  Receipt Date: 20070621
  Transmission Date: 20080405
  Serious: No
  Sender: FDA-Public Use
  Company Number: US-ASTRAZENECA-2007UW14844

PATIENT
  Age: 54 Year
  Sex: Female
  Weight: 78 kg

DRUGS (3)
  1. CRESTOR [Suspect]
     Route: 048
  2. CANDESTROY [Concomitant]
  3. DIFLUCAN [Concomitant]

REACTIONS (1)
  - FUNGAL INFECTION [None]
